FAERS Safety Report 16414154 (Version 1)
Quarter: 2019Q2

REPORT INFORMATION
  Report Type: Spontaneous
  Country: ES (occurrence: ES)
  Receive Date: 20190611
  Receipt Date: 20190611
  Transmission Date: 20190711
  Serious: Yes (Other)
  Sender: FDA-Public Use
  Company Number: PHHY2019ES129209

PATIENT
  Age: 35 Year
  Sex: Female

DRUGS (6)
  1. LEDERFOLIN [Concomitant]
     Active Substance: LEUCOVORIN CALCIUM
     Indication: ANAEMIA PROPHYLAXIS
     Dosage: 15 MG, QD
     Route: 048
     Dates: start: 201904
  2. PENTASA [Concomitant]
     Active Substance: MESALAMINE
     Indication: COLITIS ULCERATIVE
     Dosage: 4 G, QD
     Route: 048
     Dates: start: 201902, end: 201903
  3. SANDIMMUN [Suspect]
     Active Substance: CYCLOSPORINE
     Indication: COLITIS ULCERATIVE
     Dosage: 100 MG, QD
     Route: 042
     Dates: start: 20190404, end: 20190404
  4. METOJECT [Concomitant]
     Active Substance: METHOTREXATE SODIUM
     Indication: COLITIS ULCERATIVE
     Dosage: 25 MG, QW
     Route: 058
     Dates: start: 201808, end: 201903
  5. EDELSIN [Concomitant]
     Active Substance: ETHINYL ESTRADIOL\NORGESTIMATE
     Indication: CHEMICAL CONTRACEPTION
     Dosage: 1 DF, QD
     Route: 048
  6. SALOFALK [Concomitant]
     Indication: COLITIS ULCERATIVE
     Dosage: 1 G, QD
     Route: 054
     Dates: start: 201707

REACTIONS (1)
  - Anaphylactic reaction [Recovered/Resolved]

NARRATIVE: CASE EVENT DATE: 20190404
